FAERS Safety Report 9186444 (Version 3)
Quarter: 2013Q3

REPORT INFORMATION
  Report Type: Report from Study
  Country: AU (occurrence: AU)
  Receive Date: 20130325
  Receipt Date: 20130731
  Transmission Date: 20140515
  Serious: Yes (Other)
  Sender: FDA-Public Use
  Company Number: AU-CELGENEUS-008-C5013-13031926

PATIENT
  Age: 65 Year
  Sex: Male
  Weight: 100.3 kg

DRUGS (9)
  1. CC-5013 [Suspect]
     Indication: CHRONIC LYMPHOCYTIC LEUKAEMIA
     Dosage: 5 MILLIGRAM
     Route: 048
     Dates: start: 20100208, end: 20130308
  2. CC-5013 [Suspect]
     Dosage: 5 MILLIGRAM
     Route: 048
     Dates: start: 20130107, end: 20130208
  3. CALCITRIOL [Concomitant]
     Indication: PRODUCT USED FOR UNKNOWN INDICATION
     Route: 065
  4. NEXIUM [Concomitant]
     Indication: PRODUCT USED FOR UNKNOWN INDICATION
     Dosage: 40 MILLIGRAM
     Route: 065
  5. GASTROSTOP [Concomitant]
     Indication: PRODUCT USED FOR UNKNOWN INDICATION
     Route: 065
  6. CALCIUM [Concomitant]
     Indication: SUPPLEMENTATION THERAPY
     Route: 065
  7. ASPIRINE [Concomitant]
     Indication: PRODUCT USED FOR UNKNOWN INDICATION
     Route: 065
     Dates: start: 20130219
  8. ASPIRINE [Concomitant]
     Route: 065
  9. FLOUROURACIL [Concomitant]
     Indication: SKIN CANCER
     Route: 061

REACTIONS (3)
  - Eye movement disorder [Recovered/Resolved]
  - Visual field defect [Recovered/Resolved]
  - Movement disorder [Recovered/Resolved]
